FAERS Safety Report 18194751 (Version 2)
Quarter: 2020Q3

REPORT INFORMATION
  Report Type: Report from Study
  Country: US (occurrence: US)
  Receive Date: 20200826
  Receipt Date: 20200907
  Transmission Date: 20201103
  Serious: Yes (Hospitalization, Other)
  Sender: FDA-Public Use
  Company Number: US-AMGEN INC.-USASL2020124890

PATIENT
  Age: 47 Year
  Sex: Female
  Weight: 73.5 kg

DRUGS (12)
  1. AIMOVIG [Suspect]
     Active Substance: ERENUMAB-AOOE
     Indication: MIGRAINE
     Dosage: 140 MILLIGRAM
     Route: 058
     Dates: start: 20200714, end: 20200714
  2. MAGNESIUM CITRATE. [Suspect]
     Active Substance: MAGNESIUM CITRATE
     Indication: CONSTIPATION
     Route: 065
  3. FIRDAPSE [Concomitant]
     Active Substance: AMIFAMPRIDINE PHOSPHATE
     Indication: MYASTHENIC SYNDROME
     Dosage: 30 MILLIGRAM, QD ( 20 MG IN THE MORNING AND 10 MG IN THE EVENING)
     Route: 048
     Dates: start: 2019
  4. MIDODRINE [Concomitant]
     Active Substance: MIDODRINE
     Dosage: UNK UNK, BID (15MG IN THE MORNING AND 10 MG AT NIGHT)
  5. ELIQUIS [Concomitant]
     Active Substance: APIXABAN
     Dosage: UNK UNK, QD (2 OR 2.5 MG TABLET, 2 TIMES PER DAY)
  6. PREDNISONE. [Concomitant]
     Active Substance: PREDNISONE
     Dosage: 5 MILLIGRAM, QD
  7. NADOLOL. [Concomitant]
     Active Substance: NADOLOL
     Dosage: UNK UNK, BID (SEPARATE 10 MG AND 20 MG DOSES 2 TIMES PER DAY)
  8. ISOSORBIDE MONONITRATE. [Concomitant]
     Active Substance: ISOSORBIDE MONONITRATE
     Dosage: 30 MILLIGRAM, QD
  9. SERTRALINE [Concomitant]
     Active Substance: SERTRALINE HYDROCHLORIDE
     Dosage: 50 MILLIGRAM, QD
  10. GAMUNEX [Concomitant]
     Active Substance: HUMAN IMMUNOGLOBULIN G
     Dosage: UNK UNK, Q3WK
  11. MYOBLOC [BOTULINUM TOXIN TYPE B] [Concomitant]
     Dosage: UNK (EVERY 10 WEEKS)
  12. ATIVAN [Concomitant]
     Active Substance: LORAZEPAM
     Dosage: 0.5 MILLIGRAM, AS NECESSARY

REACTIONS (12)
  - Ventricular extrasystoles [Recovered/Resolved]
  - Pulmonary embolism [Not Recovered/Not Resolved]
  - Injection site pain [Unknown]
  - Hypoaesthesia [Recovered/Resolved]
  - Palpitations [Recovered/Resolved]
  - Diarrhoea [Recovered/Resolved]
  - Blood pressure increased [Recovered/Resolved]
  - Migraine [Recovered/Resolved]
  - Constipation [Recovered/Resolved]
  - Tremor [Not Recovered/Not Resolved]
  - Pancreatitis [Recovered/Resolved]
  - Pain in extremity [Recovered/Resolved]

NARRATIVE: CASE EVENT DATE: 202007
